FAERS Safety Report 8003232-9 (Version None)
Quarter: 2011Q4

REPORT INFORMATION
  Report Type: 
  Country: None (occurrence: None)
  Receive Date: 20111222
  Receipt Date: 20111216
  Transmission Date: 20120403
  Serious: Yes (Hospitalization)
  Sender: FDA-Public Use
  Company Number: PHHY2011IT104984

PATIENT
  Sex: Female

DRUGS (2)
  1. OXCARBAZEPINE [Suspect]
     Indication: EPILEPSY
     Dosage: 1 DF
     Route: 048
     Dates: start: 20080101, end: 20111103
  2. VALSARTAN [Suspect]
     Indication: HYPERTENSION
     Dosage: 1 DF
     Route: 048
     Dates: start: 20080101, end: 20111103

REACTIONS (8)
  - FALL [None]
  - SLEEP APNOEA SYNDROME [None]
  - VERTIGO [None]
  - INJURY [None]
  - SYNCOPE [None]
  - EPILEPSY [None]
  - NASAL SEPTUM DISORDER [None]
  - ENCEPHALOPATHY [None]
